FAERS Safety Report 6532366-0 (Version None)
Quarter: 2010Q1

REPORT INFORMATION
  Report Type: 
  Country: None (occurrence: None)
  Receive Date: 20100108
  Receipt Date: 20100103
  Transmission Date: 20100710
  Serious: Yes (Other)
  Sender: FDA-Public Use
  Company Number: EG-PFIZER INC-2010000202

PATIENT
  Age: 16 Year
  Sex: Female

DRUGS (3)
  1. CEFOBID [Suspect]
     Indication: PNEUMONIA
     Dosage: 0.25 MG/KG, 2X/DAY
     Route: 042
     Dates: start: 20091123, end: 20091123
  2. AMPICILLIN SODIUM/SULBACTAM SODIUM [Concomitant]
     Indication: PNEUMONIA
     Dosage: 1.5 G, 2X/DAY
     Route: 042
     Dates: start: 20091123
  3. INSULIN [Concomitant]
     Indication: DIABETES MELLITUS
     Dosage: UNK
     Route: 058

REACTIONS (3)
  - CHEST DISCOMFORT [None]
  - FLUSHING [None]
  - HYPERSENSITIVITY [None]
